FAERS Safety Report 16600112 (Version 1)
Quarter: 2019Q3

REPORT INFORMATION
  Report Type: Spontaneous
  Country: FR (occurrence: FR)
  Receive Date: 20190720
  Receipt Date: 20190720
  Transmission Date: 20191004
  Serious: Yes (Other)
  Sender: FDA-Public Use
  Company Number: FR-TEVA-2019-FR-1079295

PATIENT
  Age: 29 Year
  Sex: Female

DRUGS (2)
  1. TEMESTA 2,5 MG, COMPRIME SECABLE [Suspect]
     Active Substance: LORAZEPAM
     Dosage: 12.5 MG PER DAY
     Route: 048
  2. CHLORHYDRATE DE TRAMADOL [Suspect]
     Active Substance: TRAMADOL HYDROCHLORIDE
     Dosage: 400 MG PER DAY
     Route: 048

REACTIONS (5)
  - Drug abuse [Not Recovered/Not Resolved]
  - Intentional product misuse [Not Recovered/Not Resolved]
  - Drug dependence [Not Recovered/Not Resolved]
  - Drug withdrawal syndrome [Not Recovered/Not Resolved]
  - Drug diversion [Not Recovered/Not Resolved]
